FAERS Safety Report 4543170-7 (Version None)
Quarter: 2004Q4

REPORT INFORMATION
  Report Type: 
  Country: None (occurrence: None)
  Receive Date: 20041223
  Receipt Date: 20041215
  Transmission Date: 20050328
  Serious: Yes (Other)
  Sender: FDA-Public Use
  Company Number: 601588

PATIENT
  Age: 6 Year
  Sex: Male
  Weight: 33 kg

DRUGS (1)
  1. ADVATE (ANTIHEMOPHILIC FACTOR (RECOMBINANT), PLASMA/ALBUMIN FREE METHO [Suspect]
     Indication: PROPHYLAXIS
     Dosage: 1000 IU; TIW; INTRAVENOUS
     Route: 042
     Dates: start: 20040701, end: 20040101

REACTIONS (1)
  - ANTI FACTOR VIII ANTIBODY POSITIVE [None]
